FAERS Safety Report 4741524-7 (Version None)
Quarter: 2005Q3

REPORT INFORMATION
  Report Type: 
  Country: None (occurrence: None)
  Receive Date: 20050808
  Receipt Date: 20050524
  Transmission Date: 20060218
  Serious: No
  Sender: FDA-Public Use
  Company Number: 2005FR-00200

PATIENT
  Age: 74 Year
  Sex: Female

DRUGS (11)
  1. PROZAC [Suspect]
     Indication: DEPRESSION
     Dosage: 20 MG
     Route: 048
     Dates: start: 20050211, end: 20050303
  2. VENLAFAXINE [Concomitant]
  3. ACETAMINOPHEN W/ CODEINE [Concomitant]
  4. METOCLOPRAMIDE [Concomitant]
  5. VALSARTAN [Concomitant]
  6. ATORVASTATIN [Concomitant]
  7. ASPIRIN [Concomitant]
  8. CO-AMILOZIDE [Concomitant]
  9. OMEPRAZOLE [Concomitant]
  10. RISEDRONATE SODIUM [Concomitant]
  11. ALPHACALCIDOL [Concomitant]

REACTIONS (10)
  - AGITATION [None]
  - ANOREXIA [None]
  - DEPRESSION [None]
  - FEELING OF DESPAIR [None]
  - HEADACHE [None]
  - NAUSEA [None]
  - RHINORRHOEA [None]
  - SEROTONIN SYNDROME [None]
  - THINKING ABNORMAL [None]
  - TREMOR [None]
